FAERS Safety Report 13197366 (Version 2)
Quarter: 2017Q1

REPORT INFORMATION
  Report Type: Spontaneous
  Country: PT (occurrence: PT)
  Receive Date: 20170208
  Receipt Date: 20170215
  Transmission Date: 20170428
  Serious: Yes (Life-Threatening)
  Sender: FDA-Public Use
  Company Number: PT-JNJFOC-20170206439

PATIENT
  Age: 45 Year
  Sex: Male

DRUGS (2)
  1. IBRUTINIB [Suspect]
     Active Substance: IBRUTINIB
     Indication: CHRONIC LYMPHOCYTIC LEUKAEMIA
     Route: 048
     Dates: start: 20170103
  2. TINZAPARIN [Concomitant]
     Active Substance: TINZAPARIN
     Route: 065

REACTIONS (2)
  - Diarrhoea [Unknown]
  - Neutropenia [Unknown]
